FAERS Safety Report 14927963 (Version 22)
Quarter: 2024Q1

REPORT INFORMATION
  Report Type: Report from Study
  Country: US (occurrence: US)
  Receive Date: 20180523
  Receipt Date: 20240131
  Transmission Date: 20240409
  Serious: Yes (Other)
  Sender: FDA-Public Use
  Company Number: US-JAZZ-JPI-P-033674

PATIENT
  Sex: Female
  Weight: 63.636 kg

DRUGS (39)
  1. XYREM [Suspect]
     Active Substance: SODIUM OXYBATE
     Indication: Narcolepsy
     Dosage: 2.25 GRAM, BID
     Route: 048
     Dates: start: 20090626, end: 200907
  2. XYREM [Suspect]
     Active Substance: SODIUM OXYBATE
     Indication: Cataplexy
     Dosage: UNKNOWN DOSE
     Route: 048
     Dates: start: 200907, end: 2011
  3. XYREM [Suspect]
     Active Substance: SODIUM OXYBATE
     Indication: Somnolence
     Dosage: 4.5 GRAM, BID
     Route: 048
     Dates: start: 2011, end: 2017
  4. XYREM [Suspect]
     Active Substance: SODIUM OXYBATE
     Dosage: 4 GRAM, BID
     Route: 048
     Dates: start: 2017
  5. PHENERGAN [Suspect]
     Active Substance: PROMETHAZINE HYDROCHLORIDE
     Indication: Product used for unknown indication
     Dosage: UNK
  6. XANAX [Suspect]
     Active Substance: ALPRAZOLAM
     Indication: Anxiety
     Dosage: UNK
  7. XANAX [Suspect]
     Active Substance: ALPRAZOLAM
     Indication: Social anxiety disorder
  8. BUSPIRONE [Suspect]
     Active Substance: BUSPIRONE HYDROCHLORIDE
     Indication: Product used for unknown indication
     Dosage: UNK
  9. CLONAZEPAM [Suspect]
     Active Substance: CLONAZEPAM
     Indication: Product used for unknown indication
     Dosage: UNKNOWN DOSE AND FREQUENCY
  10. CLONAZEPAM [Suspect]
     Active Substance: CLONAZEPAM
     Dosage: UNKNOWN DOSE AND FREQUENCY
  11. CANNABINOL [Concomitant]
     Active Substance: CANNABINOL
     Indication: Product used for unknown indication
     Dosage: UNK
  12. HONOKIOL [Concomitant]
     Indication: Product used for unknown indication
     Dosage: UNK
  13. HONOKIOL [Concomitant]
     Dosage: UNK
  14. MOLYBDENUM [Concomitant]
     Active Substance: MOLYBDENUM
     Indication: Product used for unknown indication
     Dosage: UNK
  15. MOLYBDENUM [Concomitant]
     Active Substance: MOLYBDENUM
     Dosage: UNK
  16. VITAMIN D3 [Concomitant]
     Active Substance: CHOLECALCIFEROL
     Indication: Product used for unknown indication
     Dosage: UNK
  17. IODINE [Concomitant]
     Active Substance: IODINE
     Indication: Product used for unknown indication
     Dosage: UNK
  18. FISH OIL [Concomitant]
     Active Substance: FISH OIL
     Indication: Product used for unknown indication
     Dosage: UNK
  19. ULTRA FLORA PLUS [Concomitant]
     Indication: Product used for unknown indication
     Dosage: UNK
  20. ULTRA FLORA PLUS [Concomitant]
     Dosage: UNK
  21. METHYL FOLATE [FOLIC ACID;MECOBALAMIN;PYRIDOXINE HYDROCHLORIDE] [Concomitant]
     Indication: Product used for unknown indication
     Dosage: UNK
  22. SPARGA [Concomitant]
     Indication: Product used for unknown indication
     Dosage: UNK
  23. SPARGA [Concomitant]
     Dosage: UNK
  24. LITHIUM CITRATE [Concomitant]
     Active Substance: LITHIUM CITRATE
     Indication: Product used for unknown indication
     Dosage: UNK
     Dates: start: 20181211
  25. ORTHO DIGESTZYME [Concomitant]
     Indication: Product used for unknown indication
     Dosage: UNK
     Dates: start: 20140801
  26. 3,3^-DIINDOLYLMETHANE [Concomitant]
     Active Substance: 3,3^-DIINDOLYLMETHANE
     Indication: Product used for unknown indication
     Dosage: UNK
     Dates: start: 20170101
  27. 3,3^-DIINDOLYLMETHANE [Concomitant]
     Active Substance: 3,3^-DIINDOLYLMETHANE
     Dosage: 10 MILLIGRAM
     Dates: start: 20220530
  28. ZOFRAN [Concomitant]
     Active Substance: ONDANSETRON HYDROCHLORIDE
     Indication: Product used for unknown indication
     Dosage: UNK
     Dates: start: 20220513
  29. DICYCLOMINE HYDROCHLORIDE [Concomitant]
     Active Substance: DICYCLOMINE HYDROCHLORIDE
     Indication: Product used for unknown indication
     Dosage: UNK
     Dates: start: 20220520
  30. OMEPRAZOLE [Concomitant]
     Active Substance: OMEPRAZOLE
     Indication: Product used for unknown indication
     Dosage: UNK
     Dates: start: 20220430
  31. GAS-X MAX STRENGTH [Concomitant]
     Indication: Product used for unknown indication
     Dosage: UNK
     Dates: start: 20220301
  32. KETONE [Concomitant]
     Indication: Product used for unknown indication
     Dosage: UNK
     Dates: start: 20221101
  33. NARATRIPTAN [Concomitant]
     Active Substance: NARATRIPTAN HYDROCHLORIDE
     Indication: Product used for unknown indication
     Dosage: UNK
     Dates: start: 20221101
  34. IBUPROFEN [Concomitant]
     Active Substance: IBUPROFEN
     Indication: Product used for unknown indication
     Dosage: 200 MG CAPLET
     Dates: start: 20200117
  35. PRISTIQ EXTENDED-RELEASE [Concomitant]
     Active Substance: DESVENLAFAXINE SUCCINATE
     Indication: Product used for unknown indication
     Dosage: UNK
     Dates: start: 20230807
  36. CLINDAMYCIN PHOSPHATE [Concomitant]
     Active Substance: CLINDAMYCIN PHOSPHATE
     Indication: Product used for unknown indication
     Dosage: UNK
     Dates: start: 20230921
  37. SUNOSI [Concomitant]
     Active Substance: SOLRIAMFETOL
     Indication: Product used for unknown indication
     Dosage: UNK
     Dates: start: 20230907
  38. QBREXZA [Concomitant]
     Active Substance: GLYCOPYRRONIUM TOSYLATE
     Indication: Product used for unknown indication
     Dosage: UNK
     Dates: start: 20231001
  39. MINOCYCLINE [Concomitant]
     Active Substance: MINOCYCLINE HYDROCHLORIDE
     Indication: Product used for unknown indication
     Dosage: UNK
     Dates: start: 20230927

REACTIONS (23)
  - Gastrointestinal haemorrhage [Recovering/Resolving]
  - Unresponsive to stimuli [Unknown]
  - Drug dependence [Unknown]
  - Suicide attempt [Unknown]
  - Suicidal ideation [Not Recovered/Not Resolved]
  - Depression [Unknown]
  - Migraine [Not Recovered/Not Resolved]
  - Social anxiety disorder [Unknown]
  - Disability [Unknown]
  - Myoclonus [Unknown]
  - Photophobia [Recovering/Resolving]
  - Hypoaesthesia [Unknown]
  - Enuresis [Unknown]
  - Anxiety [Unknown]
  - Hallucinations, mixed [Unknown]
  - Panic attack [Not Recovered/Not Resolved]
  - Dizziness [Recovering/Resolving]
  - Drug hypersensitivity [Unknown]
  - Fall [Unknown]
  - Injury [Unknown]
  - Intentional product use issue [Unknown]
  - Product administration interrupted [Unknown]
  - Therapeutic product effect decreased [Unknown]

NARRATIVE: CASE EVENT DATE: 20120101
